FAERS Safety Report 11073149 (Version 1)
Quarter: 2015Q2

REPORT INFORMATION
  Report Type: Spontaneous
  Country: FI (occurrence: FI)
  Receive Date: 20150428
  Receipt Date: 20150428
  Transmission Date: 20150821
  Serious: Yes (Other)
  Sender: FDA-Public Use
  Company Number: FI-BRISTOL-MYERS SQUIBB COMPANY-BMS-2015-025135

PATIENT
  Age: 51 Year
  Sex: Female

DRUGS (7)
  1. ORENCIA [Suspect]
     Active Substance: ABATACEPT
     Indication: RHEUMATOID ARTHRITIS
     Dosage: 500 MG, Q4WK
     Route: 042
     Dates: start: 201302
  2. PREDNISOLON                        /00016201/ [Suspect]
     Active Substance: PREDNISOLONE
     Indication: RHEUMATOID ARTHRITIS
     Dosage: 40 MG, UNK
     Route: 065
  3. ORENCIA [Suspect]
     Active Substance: ABATACEPT
     Indication: RHEUMATOID ARTHRITIS
     Dosage: 125 MG, QWK
     Route: 058
     Dates: start: 201309
  4. METHOTREXATE [Suspect]
     Active Substance: METHOTREXATE
     Indication: RHEUMATOID ARTHRITIS
     Dosage: 20 MG, QWK
     Route: 058
  5. SALAZOSULFAPYRIDINE [Suspect]
     Active Substance: SULFASALAZINE
     Indication: RHEUMATOID ARTHRITIS
     Dosage: 3 DF, QD
     Route: 065
  6. MYOCRISIN (SODIUM AUROTHIOMALATE) [Suspect]
     Active Substance: GOLD SODIUM THIOMALATE
     Indication: RHEUMATOID ARTHRITIS
     Dosage: 50 MG, Q2WK
     Route: 065
  7. LEDERSPAN [Concomitant]
     Active Substance: TRIAMCINOLONE HEXACETONIDE
     Indication: OSTEOARTHRITIS
     Route: 065

REACTIONS (5)
  - Tooth infection [Recovered/Resolved]
  - Ankle fracture [Recovering/Resolving]
  - Fall [Unknown]
  - Influenza [Unknown]
  - False positive investigation result [Unknown]

NARRATIVE: CASE EVENT DATE: 201302
